FAERS Safety Report 4530370-5 (Version None)
Quarter: 2004Q4

REPORT INFORMATION
  Report Type: 
  Country: None (occurrence: None)
  Receive Date: 20041215
  Receipt Date: 20041201
  Transmission Date: 20050328
  Serious: Yes (Other)
  Sender: FDA-Public Use
  Company Number: 230011K04CAN

PATIENT
  Age: 39 Year
  Sex: Female

DRUGS (1)
  1. REBIF [Suspect]

REACTIONS (8)
  - CELLULITIS [None]
  - DISCOMFORT [None]
  - FAT NECROSIS [None]
  - FEELING HOT [None]
  - FOREIGN BODY TRAUMA [None]
  - INCISION SITE COMPLICATION [None]
  - INJECTION SITE NECROSIS [None]
  - POSTOPERATIVE WOUND COMPLICATION [None]
